FAERS Safety Report 8861548 (Version 1)
Quarter: 2012Q4

REPORT INFORMATION
  Report Type: Spontaneous
  Country: US (occurrence: None)
  Receive Date: 20121025
  Receipt Date: 20121025
  Transmission Date: 20130627
  Serious: Yes (Hospitalization, Other)
  Sender: FDA-Public Use
  Company Number: None

PATIENT
  Age: 75 Year
  Sex: Female

DRUGS (1)
  1. METOCLOPRAMIDE [Suspect]
     Dosage: 10 MG PO QID
     Route: 048
     Dates: end: 20120605

REACTIONS (3)
  - Eructation [None]
  - Tardive dyskinesia [None]
  - Aerophagia [None]
